FAERS Safety Report 13311608 (Version 3)
Quarter: 2025Q4

REPORT INFORMATION
  Report Type: Spontaneous
  Country: US (occurrence: US)
  Receive Date: 20170309
  Receipt Date: 20251030
  Transmission Date: 20260118
  Serious: No
  Sender: JOHNSON AND JOHNSON
  Company Number: US-JNJFOC-20170303265

PATIENT
  Age: 38 Year
  Sex: Male

DRUGS (14)
  1. RISPERDAL [Suspect]
     Active Substance: RISPERIDONE
     Indication: Oppositional defiant disorder
     Route: 048
     Dates: start: 20040524, end: 20061102
  2. RISPERDAL [Suspect]
     Active Substance: RISPERIDONE
     Indication: Attention deficit hyperactivity disorder
     Route: 048
     Dates: start: 20110501, end: 20120612
  3. RISPERDAL [Suspect]
     Active Substance: RISPERIDONE
  4. RISPERDAL [Suspect]
     Active Substance: RISPERIDONE
  5. RISPERDAL [Suspect]
     Active Substance: RISPERIDONE
  6. RISPERDAL [Suspect]
     Active Substance: RISPERIDONE
  7. INVEGA [Suspect]
     Active Substance: PALIPERIDONE
     Indication: Attention deficit hyperactivity disorder
     Dosage: WITH VARYING DOSES OF 3,6,9 MG
     Route: 048
     Dates: start: 20120724, end: 20121102
  8. INVEGA [Suspect]
     Active Substance: PALIPERIDONE
     Indication: Oppositional defiant disorder
  9. RISPERIDONE [Suspect]
     Active Substance: RISPERIDONE
     Indication: Oppositional defiant disorder
     Dosage: WITH VARYING DOSES OF 0.5,1,1.5,2.5,AND 5 MG
     Route: 048
     Dates: start: 20040624, end: 20061102
  10. RISPERIDONE [Suspect]
     Active Substance: RISPERIDONE
     Indication: Attention deficit hyperactivity disorder
     Dosage: WITH VARYING DOSES OF 0.5 AND 2 MG
     Route: 048
     Dates: start: 20110501, end: 20120612
  11. RISPERIDONE [Suspect]
     Active Substance: RISPERIDONE
  12. RISPERIDONE [Suspect]
     Active Substance: RISPERIDONE
  13. RISPERIDONE [Suspect]
     Active Substance: RISPERIDONE
  14. RISPERIDONE [Suspect]
     Active Substance: RISPERIDONE

REACTIONS (4)
  - Off label use [Unknown]
  - Product use in unapproved indication [Unknown]
  - Gynaecomastia [Unknown]
  - Emotional disorder [Unknown]

NARRATIVE: CASE EVENT DATE: 20040524
